FAERS Safety Report 20003819 (Version 7)
Quarter: 2022Q2

REPORT INFORMATION
  Report Type: Spontaneous
  Country: US (occurrence: US)
  Receive Date: 20211027
  Receipt Date: 20220628
  Transmission Date: 20220721
  Serious: Yes (Other)
  Sender: FDA-Public Use
  Company Number: US-PFIZER INC-2021260180

PATIENT
  Age: 77 Year
  Sex: Female

DRUGS (1)
  1. XELJANZ XR [Suspect]
     Active Substance: TOFACITINIB CITRATE
     Dosage: 11 MG

REACTIONS (26)
  - Autoimmune disorder [Unknown]
  - Diabetes mellitus [Not Recovered/Not Resolved]
  - Cardiac disorder [Unknown]
  - Loss of consciousness [Unknown]
  - Post procedural complication [Unknown]
  - Dependence on oxygen therapy [Unknown]
  - Glaucoma [Unknown]
  - Sjogren^s syndrome [Unknown]
  - Systemic lupus erythematosus [Unknown]
  - Psoriatic arthropathy [Unknown]
  - Sarcoidosis [Unknown]
  - Craniocerebral injury [Unknown]
  - Reading disorder [Unknown]
  - Amnesia [Unknown]
  - Confusional state [Unknown]
  - Road traffic accident [Unknown]
  - Head injury [Recovered/Resolved]
  - Hypersensitivity [Unknown]
  - Lung disorder [Not Recovered/Not Resolved]
  - Pain [Unknown]
  - Anaemia [Unknown]
  - Microcytic anaemia [Unknown]
  - COVID-19 [Recovered/Resolved]
  - Bronchitis [Recovering/Resolving]
  - Daydreaming [Unknown]
  - Communication disorder [Unknown]
